FAERS Safety Report 5382896-2 (Version None)
Quarter: 2007Q3

REPORT INFORMATION
  Report Type: 
  Country: None (occurrence: None)
  Receive Date: 20070705
  Receipt Date: 20070705
  Transmission Date: 20080115
  Serious: No
  Sender: FDA-Public Use
  Company Number: None

PATIENT
  Age: 54 Year
  Sex: Female

DRUGS (2)
  1. HEPARIN SODIUM [Suspect]
     Indication: AORTIC VALVE REPLACEMENT
     Dosage: RECEIVED IN OR-70000 UN
     Dates: start: 20070515
  2. ENOXAPARIN SODIUM [Suspect]
     Dosage: 60MG EVERY 12 HOURS
     Dates: start: 20070518, end: 20070524

REACTIONS (1)
  - PLATELET COUNT DECREASED [None]
